FAERS Safety Report 4368112-9 (Version None)
Quarter: 2004Q2

REPORT INFORMATION
  Report Type: 
  Country: None (occurrence: None)
  Receive Date: 20040602
  Receipt Date: 20040524
  Transmission Date: 20050107
  Serious: Yes (Other)
  Sender: FDA-Public Use
  Company Number: ES-BRISTOL-MYERS SQUIBB COMPANY-12595682

PATIENT
  Age: 68 Year
  Sex: Male

DRUGS (3)
  1. KARVEA TABS 150 MG [Suspect]
     Route: 048
  2. SOTAPOR [Concomitant]
  3. SINTROM [Concomitant]

REACTIONS (1)
  - EXANTHEM [None]
